FAERS Safety Report 13449623 (Version 2)
Quarter: 2017Q2

REPORT INFORMATION
  Report Type: Report from Study
  Country: US (occurrence: US)
  Receive Date: 20170417
  Receipt Date: 20170505
  Transmission Date: 20170830
  Serious: Yes (Hospitalization)
  Sender: FDA-Public Use
  Company Number: US-ACTELION-A-NJ2016-147050

PATIENT
  Age: 39 Year
  Sex: Female
  Weight: 78.46 kg

DRUGS (3)
  1. VELETRI [Suspect]
     Active Substance: EPOPROSTENOL
     Dosage: 18 NG/KG, PER MIN
     Route: 042
  2. VELETRI [Suspect]
     Active Substance: EPOPROSTENOL
     Indication: PULMONARY HYPERTENSION
     Dosage: 17 NG/KG, PER MIN
     Route: 042
     Dates: start: 20161129
  3. VELETRI [Suspect]
     Active Substance: EPOPROSTENOL
     Dosage: 16 NG/KG, PER MIN
     Route: 042

REACTIONS (14)
  - Catheter site discharge [Unknown]
  - Catheter site vesicles [Unknown]
  - Sinus disorder [Unknown]
  - Pain in extremity [Unknown]
  - Migraine [Unknown]
  - Anxiety [Unknown]
  - Catheter site erythema [Unknown]
  - Pain in jaw [Unknown]
  - Flushing [Unknown]
  - Dyspnoea exertional [Unknown]
  - Catheter management [Unknown]
  - Headache [Unknown]
  - Palpitations [Unknown]
  - Catheter site pain [Unknown]
